FAERS Safety Report 7974729-2 (Version None)
Quarter: 2011Q4

REPORT INFORMATION
  Report Type: 
  Country: None (occurrence: None)
  Receive Date: 20111213
  Receipt Date: 20111209
  Transmission Date: 20120403
  Serious: No
  Sender: FDA-Public Use
  Company Number: US-TEVA-313322USA

PATIENT
  Sex: Female
  Weight: 52.21 kg

DRUGS (2)
  1. CREON [Concomitant]
     Indication: CYSTIC FIBROSIS
     Route: 048
  2. PLAN B ONE-STEP [Suspect]
     Indication: POST COITAL CONTRACEPTION
     Dosage: 1.5 MILLIGRAM;
     Route: 048
     Dates: start: 20111208, end: 20111208

REACTIONS (1)
  - VOMITING [None]
